FAERS Safety Report 9372525 (Version 1)
Quarter: 2013Q2

REPORT INFORMATION
  Report Type: Spontaneous
  Country: US (occurrence: None)
  Receive Date: 20130607
  Receipt Date: 20130607
  Transmission Date: 20140414
  Serious: Yes (Other)
  Sender: FDA-Public Use
  Company Number: 2013036347

PATIENT
  Age: 50 Year
  Sex: Male

DRUGS (1)
  1. PRIVIGEN [Suspect]
     Indication: VASCULITIS
     Route: 042

REACTIONS (3)
  - Off label use [None]
  - Convulsion [None]
  - Infusion related reaction [None]
